FAERS Safety Report 9897877 (Version 6)
Quarter: 2022Q2

REPORT INFORMATION
  Report Type: Spontaneous
  Country: US (occurrence: US)
  Receive Date: 20140214
  Receipt Date: 20220512
  Transmission Date: 20220720
  Serious: No
  Sender: FDA-Public Use
  Company Number: US-PFIZER INC-2014035706

PATIENT
  Age: 54 Year
  Sex: Female

DRUGS (2)
  1. RELPAX [Suspect]
     Active Substance: ELETRIPTAN HYDROBROMIDE
     Indication: Migraine
     Dosage: 40 MG, UNK
  2. RELPAX [Suspect]
     Active Substance: ELETRIPTAN HYDROBROMIDE
     Dosage: 40 MG, AS NEEDED (TAKE 1 TABLET BY MOUTH IF NEEDED MAX OF 80 MILLIGRAMS (2 TABLETS) IN 24 HOURS)
     Route: 048

REACTIONS (3)
  - Drug ineffective [Unknown]
  - Product prescribing error [Unknown]
  - Product dispensing error [Unknown]
